FAERS Safety Report 5474149-9 (Version None)
Quarter: 2007Q4

REPORT INFORMATION
  Report Type: 
  Country: None (occurrence: None)
  Receive Date: 20071002
  Receipt Date: 20070920
  Transmission Date: 20080405
  Serious: Yes (Other)
  Sender: FDA-Public Use
  Company Number: GB-JNJFOC-20070902602

PATIENT
  Age: 30 Year
  Sex: Female

DRUGS (7)
  1. CAELYX [Suspect]
     Indication: BREAST CANCER
     Route: 042
  2. CYCLOPHOSPHAMIDE [Suspect]
     Indication: BREAST CANCER
     Route: 042
  3. CHLORHEXIDINE GLUCONATE [Concomitant]
     Route: 065
  4. METOCLOPRAMIDE [Concomitant]
     Route: 065
  5. MOVICOL [Concomitant]
     Indication: CONSTIPATION
     Route: 065
  6. ONDANSETRON [Concomitant]
     Route: 048
  7. SENNA [Concomitant]
     Indication: CONSTIPATION
     Route: 065

REACTIONS (2)
  - DRUG EXPOSURE DURING PREGNANCY [None]
  - PREMATURE LABOUR [None]
